FAERS Safety Report 6386716-9 (Version None)
Quarter: 2009Q3

REPORT INFORMATION
  Report Type: 
  Country: None (occurrence: None)
  Receive Date: 20090930
  Receipt Date: 20090930
  Transmission Date: 20100115
  Serious: Yes (Hospitalization)
  Sender: FDA-Public Use
  Company Number: None

PATIENT
  Age: 41 Year
  Sex: Male

DRUGS (2)
  1. NALTREXONE HYDROCHLORIDE [Suspect]
     Indication: ALCOHOL ABUSE
     Dosage: 50 MG EVERY DAY PO
     Route: 048
     Dates: start: 20081120, end: 20090814
  2. MORPHINE [Suspect]
     Indication: PAIN
     Dosage: 15 MG BID PO
     Route: 048
     Dates: start: 20090812, end: 20090924

REACTIONS (8)
  - AGITATION [None]
  - CHILLS [None]
  - CONFUSIONAL STATE [None]
  - DIARRHOEA [None]
  - HYPERHIDROSIS [None]
  - MENTAL STATUS CHANGES [None]
  - NO THERAPEUTIC RESPONSE [None]
  - RETCHING [None]
